FAERS Safety Report 20666542 (Version 1)
Quarter: 2022Q2

REPORT INFORMATION
  Report Type: Spontaneous
  Country: US (occurrence: US)
  Receive Date: 20220403
  Receipt Date: 20220403
  Transmission Date: 20220721
  Serious: No
  Sender: FDA-Public Use
  Company Number: US-SA-SAC20220331001239

PATIENT
  Sex: Female

DRUGS (1)
  1. DUPIXENT [Suspect]
     Active Substance: DUPILUMAB
     Indication: Arthritis bacterial
     Dosage: 200 MG, QOW
     Route: 058

REACTIONS (4)
  - Headache [Unknown]
  - Dry skin [Unknown]
  - Product use issue [Unknown]
  - Product use in unapproved indication [Unknown]
